FAERS Safety Report 10354840 (Version 5)
Quarter: 2014Q3

REPORT INFORMATION
  Report Type: Spontaneous
  Country: US (occurrence: None)
  Receive Date: 20140718
  Receipt Date: 20140904
  Transmission Date: 20150326
  Serious: Yes (Life-Threatening, Hospitalization, Other)
  Sender: FDA-Public Use
  Company Number: 003-205

PATIENT
  Age: 54 Year
  Sex: Female

DRUGS (2)
  1. CROFAB [Suspect]
     Active Substance: CROTALIDAE POLYVALENT IMMUNE FAB (OVINE)
     Indication: SNAKE BITE
     Dates: start: 201304
  2. EXCEDRIN MIGRAINE [Concomitant]
     Active Substance: ACETAMINOPHEN\ASPIRIN\CAFFEINE

REACTIONS (10)
  - Hypersensitivity [None]
  - Groin pain [None]
  - Arthralgia [None]
  - Platelet count increased [None]
  - Palpitations [None]
  - Feeling abnormal [None]
  - Pain in extremity [None]
  - Anxiety [None]
  - Rash [None]
  - Pain [None]

NARRATIVE: CASE EVENT DATE: 201304
